FAERS Safety Report 4391494-9 (Version None)
Quarter: 2004Q3

REPORT INFORMATION
  Report Type: 
  Country: None (occurrence: None)
  Receive Date: 20040707
  Receipt Date: 20040707
  Transmission Date: 20050211
  Serious: Yes (Disabling)
  Sender: FDA-Public Use
  Company Number: None

PATIENT
  Age: 48 Year
  Sex: Male
  Weight: 120.2032 kg

DRUGS (1)
  1. CRESTOR [Suspect]
     Dosage: 1 TABLET AT NIGHT

REACTIONS (4)
  - ABASIA [None]
  - HAEMATOCHEZIA [None]
  - MYALGIA [None]
  - PAIN IN EXTREMITY [None]
